FAERS Safety Report 6820921-X (Version None)
Quarter: 2010Q3

REPORT INFORMATION
  Report Type: 
  Country: None (occurrence: None)
  Receive Date: 20100707
  Receipt Date: 20070821
  Transmission Date: 20110219
  Serious: No
  Sender: FDA-Public Use
  Company Number: US-PFIZER INC-2007066882

PATIENT
  Sex: Male
  Weight: 102.06 kg

DRUGS (4)
  1. ZOLOFT [Suspect]
     Indication: ANXIETY DISORDER
     Route: 048
     Dates: start: 19970101
  2. ZOLOFT [Suspect]
     Indication: PANIC DISORDER
  3. XANAX [Suspect]
     Indication: ANXIETY DISORDER
     Route: 048
     Dates: start: 20070101
  4. XANAX [Suspect]
     Indication: PANIC DISORDER

REACTIONS (1)
  - ANXIETY [None]
